FAERS Safety Report 5924478-7 (Version None)
Quarter: 2008Q4

REPORT INFORMATION
  Report Type: 
  Country: None (occurrence: None)
  Receive Date: 20081020
  Receipt Date: 20081008
  Transmission Date: 20090506
  Serious: Yes (Other)
  Sender: FDA-Public Use
  Company Number: US-PFIZER INC-2008078624

PATIENT
  Sex: Female
  Weight: 117 kg

DRUGS (10)
  1. LYRICA [Suspect]
     Indication: FIBROMYALGIA
     Route: 048
     Dates: start: 20071201
  2. OXYCONTIN [Concomitant]
  3. RESTORIL [Concomitant]
  4. MOMETASONE FUROATE [Concomitant]
  5. ACTONEL [Concomitant]
  6. NORCO [Concomitant]
  7. PREDNISONE TAB [Concomitant]
  8. BENICAR HCT [Concomitant]
  9. AMITRIPTYLINE HCL [Concomitant]
  10. PLAQUENIL [Concomitant]

REACTIONS (6)
  - NAUSEA [None]
  - OROPHARYNGEAL PAIN [None]
  - PRURITUS [None]
  - TREMOR [None]
  - VOMITING [None]
  - WITHDRAWAL SYNDROME [None]
